FAERS Safety Report 11217820 (Version 1)
Quarter: 2015Q2

REPORT INFORMATION
  Report Type: Spontaneous
  Country: CA (occurrence: CA)
  Receive Date: 20150625
  Receipt Date: 20150625
  Transmission Date: 20150821
  Serious: Yes (Life-Threatening)
  Sender: FDA-Public Use
  Company Number: CA-TEVA-573185ACC

PATIENT
  Age: 59 Year
  Sex: Female

DRUGS (5)
  1. ADALAT XL - SRT [Concomitant]
     Dosage: UNKNOWN FORM STRENGTH
     Route: 065
  2. QVAR [Concomitant]
     Active Substance: BECLOMETHASONE DIPROPIONATE
     Dosage: UNKNOWN FORM STRENGTH
     Route: 065
  3. RAMIPRIL. [Suspect]
     Active Substance: RAMIPRIL
     Indication: HYPERTENSION
     Dosage: 10 MILLIGRAM DAILY;
     Route: 048
  4. VENTOLIN [Concomitant]
     Active Substance: ALBUTEROL SULFATE
     Dosage: UNKNOWN FORM STRENGTH
     Route: 065
  5. NEXIUM [Concomitant]
     Active Substance: ESOMEPRAZOLE MAGNESIUM
     Dosage: UNKNOWN FORM STRENGTH
     Route: 065

REACTIONS (2)
  - Dysarthria [Unknown]
  - Swollen tongue [Unknown]
